FAERS Safety Report 4587630-1 (Version None)
Quarter: 2005Q1

REPORT INFORMATION
  Report Type: 
  Country: None (occurrence: None)
  Receive Date: 20050125
  Receipt Date: 20041018
  Transmission Date: 20050727
  Serious: No
  Sender: FDA-Public Use
  Company Number: USA040977648

PATIENT
  Age: 78 Year
  Sex: Female
  Weight: 64 kg

DRUGS (10)
  1. FORTEO [Suspect]
     Indication: OSTEOPOROSIS
     Dosage: 20 UG DAY
     Dates: start: 20040801
  2. ASPIRIN (ACETYLSALCYLIC ACID) [Concomitant]
  3. VITAMIN D [Concomitant]
  4. VITAMIN C [Concomitant]
  5. ZETIA [Concomitant]
  6. FOSAMAX [Concomitant]
  7. PROTONIX [Concomitant]
  8. PHENOBARBITAL TAB [Concomitant]
  9. DILANTIN [Concomitant]
  10. KEPPRA [Concomitant]

REACTIONS (2)
  - DIZZINESS [None]
  - INFREQUENT BOWEL MOVEMENTS [None]
